FAERS Safety Report 5971802-5 (Version None)
Quarter: 2008Q4

REPORT INFORMATION
  Report Type: 
  Country: None (occurrence: None)
  Receive Date: 20081125
  Receipt Date: 20081107
  Transmission Date: 20090506
  Serious: Yes (Hospitalization, Other)
  Sender: FDA-Public Use
  Company Number: A-JP2008-22404

PATIENT
  Age: 25 Year
  Sex: Male

DRUGS (3)
  1. TRACLEER [Suspect]
     Indication: PULMONARY ARTERIAL HYPERTENSION
     Dosage: ORAL
     Route: 048
  2. SILDENAFIL CITRATE [Concomitant]
  3. EPOPROSTENOL SODIUM [Concomitant]

REACTIONS (6)
  - CARDIAC FAILURE [None]
  - DRUG RESISTANCE [None]
  - HYPOXIA [None]
  - LUNG TRANSPLANT [None]
  - OFF LABEL USE [None]
  - SHOCK [None]
